FAERS Safety Report 12995992 (Version 1)
Quarter: 2016Q4

REPORT INFORMATION
  Report Type: Spontaneous
  Country: DE (occurrence: DE)
  Receive Date: 20161202
  Receipt Date: 20161202
  Transmission Date: 20170207
  Serious: Yes (Death, Other)
  Sender: FDA-Public Use
  Company Number: DE-ABBVIE-16P-062-1798072-00

PATIENT

DRUGS (1)
  1. DUODOPA [Suspect]
     Active Substance: CARBIDOPA\LEVODOPA
     Indication: PARKINSON^S DISEASE
     Route: 050

REACTIONS (6)
  - Sepsis [Fatal]
  - Stoma site discharge [Unknown]
  - Stoma site infection [Unknown]
  - Device dislocation [Unknown]
  - Pyloric stenosis [Unknown]
  - Enterobacter infection [Unknown]
